FAERS Safety Report 26073982 (Version 2)
Quarter: 2025Q4

REPORT INFORMATION
  Report Type: Report from Study
  Country: MX (occurrence: MX)
  Receive Date: 20251121
  Receipt Date: 20251127
  Transmission Date: 20260117
  Serious: Yes (Hospitalization, Other)
  Sender: NOVARTIS
  Company Number: MX-002147023-NVSC2024MX200447

PATIENT
  Age: 66 Year
  Sex: Female
  Weight: 81 kg

DRUGS (21)
  1. KISQALI [Suspect]
     Active Substance: RIBOCICLIB SUCCINATE
     Indication: Breast cancer metastatic
     Dosage: 3 DOSAGE FORM, QD
     Route: 048
     Dates: start: 202212, end: 202407
  2. KISQALI [Suspect]
     Active Substance: RIBOCICLIB SUCCINATE
     Indication: Breast cancer
     Dosage: 2 DOSAGE FORM, QD
     Route: 048
     Dates: start: 202312
  3. KISQALI [Suspect]
     Active Substance: RIBOCICLIB SUCCINATE
     Dosage: 2 DOSAGE FORM, QD (200 MG)
     Route: 048
     Dates: start: 202407
  4. KISQALI [Suspect]
     Active Substance: RIBOCICLIB SUCCINATE
     Dosage: 2 DOSAGE FORM, QD
     Route: 048
  5. KISQALI [Suspect]
     Active Substance: RIBOCICLIB SUCCINATE
     Dosage: 2 DOSAGE FORM, QD (200 MG)
     Route: 048
     Dates: end: 20250807
  6. KISQALI [Suspect]
     Active Substance: RIBOCICLIB SUCCINATE
     Dosage: 2 DOSAGE FORM, QD (200 MG)
     Route: 048
     Dates: start: 20250809
  7. KISQALI [Suspect]
     Active Substance: RIBOCICLIB SUCCINATE
     Dosage: 2 DOSAGE FORM, QD (200 MG)
     Route: 048
  8. KISQALI [Suspect]
     Active Substance: RIBOCICLIB SUCCINATE
     Dosage: UNK, STOP DATE (12 NOV)
     Route: 048
  9. LETROZOLE [Suspect]
     Active Substance: LETROZOLE
     Indication: Breast cancer metastatic
     Dosage: 1 DOSAGE FORM, QD (TABLET,
     Route: 048
     Dates: start: 202212
  10. LETROZOLE [Suspect]
     Active Substance: LETROZOLE
     Indication: Breast cancer
     Dosage: UNK, STOP DATE (12 NOV)
     Route: 065
  11. IBUPROFEN [Suspect]
     Active Substance: IBUPROFEN
     Indication: Pharyngeal swelling
     Dosage: 1 DOSAGE FORM, Q8H
     Route: 048
     Dates: start: 20250130, end: 20250201
  12. LEVOTHYROXINE [Concomitant]
     Active Substance: LEVOTHYROXINE
     Indication: Hypothyroidism
     Dosage: 100 UG, QD
     Route: 048
     Dates: start: 2016
  13. LEVOTHYROXINE [Concomitant]
     Active Substance: LEVOTHYROXINE
     Dosage: 0.5 DOSAGE FORM, QD (TABLET, MERCK)
     Route: 048
  14. ATORVASTATIN [Concomitant]
     Active Substance: ATORVASTATIN
     Indication: Blood cholesterol
     Dosage: 1 DOSAGE FORM, QD (TABLET, LANDSTEINER)
     Route: 048
     Dates: start: 2022
  15. SERTRALINE [Concomitant]
     Active Substance: SERTRALINE HYDROCHLORIDE
     Indication: Depressed mood
     Dosage: 1 DOSAGE FORM (TABLET), QD
     Route: 048
     Dates: start: 2022, end: 20250203
  16. DENOSUMAB [Concomitant]
     Active Substance: DENOSUMAB
     Indication: Bone disorder
     Dosage: 1 DOSAGE FORM (INJECTION), QMO SOLUTION FOR INJECTION
     Route: 058
     Dates: start: 2022
  17. METHOTREXATE [Concomitant]
     Active Substance: METHOTREXATE
     Indication: Osteoarthritis
     Dosage: 1 DOSAGE FORM (2.5 MG) TABLET
     Route: 048
     Dates: start: 202403
  18. PREGABALIN [Concomitant]
     Active Substance: PREGABALIN
     Indication: Osteoarthritis
     Dosage: 1 DOSAGE FORM (75 MG) TABLET, Q12H
     Route: 048
     Dates: start: 2022
  19. TRAMADOL [Concomitant]
     Active Substance: TRAMADOL
     Indication: Osteoarthritis
     Dosage: 1 DOSAGE FORM (TABLET), Q12H
     Route: 048
     Dates: start: 2022
  20. Mogamigue [Concomitant]
     Indication: Abdominal discomfort
     Dosage: 1 DOSAGE FORM, QD (1G) TABLET
     Route: 048
     Dates: start: 20240903
  21. SPIRONOLACTONE [Concomitant]
     Active Substance: SPIRONOLACTONE
     Indication: Urine abnormality
     Dosage: 1 DOSAGE FORM, Q24H (TABLET)
     Route: 048
     Dates: start: 20250204

REACTIONS (56)
  - Ileus paralytic [Unknown]
  - Abdominal pain upper [Recovering/Resolving]
  - Pneumonia [Unknown]
  - Anaemia [Recovering/Resolving]
  - Vitreous detachment [Not Recovered/Not Resolved]
  - Leukaemia [Unknown]
  - Metastases to liver [Unknown]
  - Metastases to lung [Unknown]
  - Metastases to bone [Unknown]
  - Metastases to peritoneum [Unknown]
  - Intraocular pressure decreased [Unknown]
  - Micturition disorder [Recovering/Resolving]
  - Peripheral swelling [Recovering/Resolving]
  - Decreased appetite [Not Recovered/Not Resolved]
  - Nausea [Not Recovered/Not Resolved]
  - Dry eye [Not Recovered/Not Resolved]
  - Blood pressure increased [Recovered/Resolved]
  - Hiatus hernia [Not Recovered/Not Resolved]
  - Gastrointestinal tract irritation [Not Recovered/Not Resolved]
  - Blood pressure decreased [Recovered/Resolved]
  - Haemorrhoids [Not Recovered/Not Resolved]
  - Helicobacter infection [Not Recovered/Not Resolved]
  - Limb discomfort [Unknown]
  - Gait disturbance [Unknown]
  - Fall [Unknown]
  - Spinal pain [Unknown]
  - Inflammation [Unknown]
  - Chills [Recovered/Resolved]
  - Anxiety [Recovered/Resolved]
  - Feeling abnormal [Recovered/Resolved]
  - Insomnia [Recovered/Resolved]
  - Depression [Recovering/Resolving]
  - Increased appetite [Unknown]
  - Crying [Unknown]
  - Feeling abnormal [Unknown]
  - Muscle atrophy [Unknown]
  - Dyspepsia [Not Recovered/Not Resolved]
  - Urinary tract infection [Recovering/Resolving]
  - Blood urine present [Recovering/Resolving]
  - Diarrhoea [Recovered/Resolved]
  - Oropharyngeal pain [Recovered/Resolved]
  - Influenza [Recovered/Resolved]
  - Pharyngeal inflammation [Recovered/Resolved]
  - Diarrhoea [Recovered/Resolved]
  - Protein urine [Not Recovered/Not Resolved]
  - Blood creatinine increased [Unknown]
  - Blood uric acid increased [Unknown]
  - Pain in extremity [Unknown]
  - Anxiety [Unknown]
  - Memory impairment [Unknown]
  - Abdominal distension [Not Recovered/Not Resolved]
  - Polyp [Not Recovered/Not Resolved]
  - Viral infection [Unknown]
  - Cough [Unknown]
  - Depressed mood [Unknown]
  - Drug ineffective [Unknown]

NARRATIVE: CASE EVENT DATE: 20241016
